FAERS Safety Report 20161907 (Version 2)
Quarter: 2021Q4

REPORT INFORMATION
  Report Type: Spontaneous
  Country: CN (occurrence: CN)
  Receive Date: 20211208
  Receipt Date: 20211209
  Transmission Date: 20220303
  Serious: Yes (Hospitalization, Other)
  Sender: FDA-Public Use
  Company Number: CN-BAXTER-2021BAX038638

PATIENT
  Age: 40 Year
  Sex: Female
  Weight: 72 kg

DRUGS (4)
  1. CYCLOPHOSPHAMIDE [Suspect]
     Active Substance: CYCLOPHOSPHAMIDE
     Indication: Breast cancer
     Dosage: D1 Q14D, CYCLOPHOSPHAMIDE 1000 MG + 0.9% SODIUM CHLORIDE 100 ML
     Route: 041
     Dates: start: 20211110, end: 20211110
  2. SODIUM CHLORIDE [Suspect]
     Active Substance: SODIUM CHLORIDE
     Indication: Medication dilution
     Dosage: D1 Q14D, CYCLOPHOSPHAMIDE 1000 MG + 0.9% SODIUM CHLORIDE 100 ML
     Route: 041
     Dates: start: 20211110, end: 20211110
  3. DEXTROSE [Suspect]
     Active Substance: DEXTROSE
     Indication: Medication dilution
     Dosage: D1 Q14D, + PIRARUBICIN HYDROCHLORIDE 100 MG + 5% GLUCOSE 100ML
     Route: 041
     Dates: start: 20211110, end: 20211110
  4. PIRARUBICIN HYDROCHLORIDE [Suspect]
     Active Substance: PIRARUBICIN HYDROCHLORIDE
     Indication: Breast cancer
     Dosage: D1 Q14D, + PIRARUBICIN HYDROCHLORIDE 100 MG + 5% GLUCOSE 100ML
     Route: 041
     Dates: start: 20211110, end: 20211110

REACTIONS (2)
  - Myelosuppression [Recovered/Resolved]
  - Granulocytopenia [Recovered/Resolved]

NARRATIVE: CASE EVENT DATE: 20211123
